FAERS Safety Report 14417852 (Version 4)
Quarter: 2018Q2

REPORT INFORMATION
  Report Type: Spontaneous
  Country: US (occurrence: US)
  Receive Date: 20180122
  Receipt Date: 20180417
  Transmission Date: 20180711
  Serious: Yes (Other)
  Sender: FDA-Public Use
  Company Number: US-BAYER-2018-006044

PATIENT
  Age: 34 Year
  Sex: Female
  Weight: 70.31 kg

DRUGS (2)
  1. MIRENA [Suspect]
     Active Substance: LEVONORGESTREL
     Indication: CONTRACEPTION
  2. MIRENA [Suspect]
     Active Substance: LEVONORGESTREL
     Indication: CONTRACEPTION
     Dosage: 20 MCG/24HR, CONT
     Route: 015
     Dates: start: 20160505

REACTIONS (7)
  - Drug ineffective [None]
  - Pregnancy with contraceptive device [None]
  - Human chorionic gonadotropin decreased [None]
  - Haemorrhage in pregnancy [None]
  - Abortion spontaneous [None]
  - Device issue [None]
  - Pelvic fluid collection [None]

NARRATIVE: CASE EVENT DATE: 201706
